FAERS Safety Report 9540300 (Version 2)
Quarter: 2013Q3

REPORT INFORMATION
  Report Type: Report from Study
  Country: GR (occurrence: GR)
  Receive Date: 20130920
  Receipt Date: 20130920
  Transmission Date: 20140515
  Serious: Yes (Hospitalization)
  Sender: FDA-Public Use
  Company Number: GR-AMGEN-GRCCT2013062184

PATIENT
  Age: 72 Year
  Sex: Male
  Weight: 99 kg

DRUGS (8)
  1. PANITUMUMAB [Suspect]
     Indication: GASTRIC CANCER
     Dosage: 6 MG/KG, Q2WK
     Route: 065
     Dates: start: 20111117, end: 20120131
  2. CDDP [Concomitant]
     Indication: GASTRIC CANCER
     Dosage: 85 MG, Q2WK
     Dates: start: 20111117, end: 20120131
  3. 5-FU [Concomitant]
     Indication: GASTRIC CANCER
     Dosage: 5160 MG, Q2WK
     Dates: start: 20111117, end: 20120131
  4. LEUCOVORIN [Concomitant]
     Indication: GASTRIC CANCER
     Dosage: 860 MG, Q2WK
     Dates: start: 20111117, end: 20120131
  5. DOCETAXEL [Concomitant]
     Indication: GASTRIC CANCER
     Dosage: 65 MG, UNK
     Dates: start: 20111117, end: 20120131
  6. CARVEDILEN [Concomitant]
     Indication: CORONARY ARTERY DISEASE
     Dosage: 625 MG, BID
     Route: 048
  7. SALOSPIR [Concomitant]
     Indication: CORONARY ARTERY DISEASE
     Dosage: 100 MG, QD
     Route: 048
  8. LEGOFER [Concomitant]
     Indication: ANAEMIA
     Dosage: 800 MG, BID
     Route: 048

REACTIONS (9)
  - Fatigue [Recovered/Resolved]
  - Hypotension [Recovered/Resolved]
  - Dizziness [Recovered/Resolved]
  - Neutropenia [Recovered/Resolved]
  - Decreased appetite [Recovered/Resolved]
  - Nausea [Recovered/Resolved]
  - Alanine aminotransferase increased [Recovering/Resolving]
  - Aspartate aminotransferase increased [Recovering/Resolving]
  - Gamma-glutamyltransferase increased [Recovering/Resolving]
